FAERS Safety Report 8182023-2 (Version None)
Quarter: 2012Q1

REPORT INFORMATION
  Report Type: 
  Country: None (occurrence: None)
  Receive Date: 20120302
  Receipt Date: 20120222
  Transmission Date: 20120608
  Serious: Yes (Other)
  Sender: FDA-Public Use
  Company Number: PHFR2012GB001320

PATIENT
  Sex: Female

DRUGS (1)
  1. DIOVAN [Suspect]
     Dosage: 160 MG, UNK

REACTIONS (7)
  - ARTHROPATHY [None]
  - FEELING ABNORMAL [None]
  - VERTIGO [None]
  - BLOOD PRESSURE FLUCTUATION [None]
  - MALAISE [None]
  - INSOMNIA [None]
  - DIZZINESS [None]
